FAERS Safety Report 6284943-2 (Version None)
Quarter: 2009Q3

REPORT INFORMATION
  Report Type: 
  Country: None (occurrence: None)
  Receive Date: 20090723
  Receipt Date: 20090709
  Transmission Date: 20100115
  Serious: Yes (Other)
  Sender: FDA-Public Use
  Company Number: 2009S1012238

PATIENT
  Age: 15 Year
  Sex: Female

DRUGS (1)
  1. LAMOTRIGINE [Suspect]
     Indication: EPILEPSY
     Dosage: 50 MG, ORAL;
     Route: 048
     Dates: start: 20080601, end: 20090501

REACTIONS (2)
  - POLLAKIURIA [None]
  - URINARY INCONTINENCE [None]
